FAERS Safety Report 18520698 (Version 3)
Quarter: 2021Q1

REPORT INFORMATION
  Report Type: Spontaneous
  Country: MA (occurrence: MA)
  Receive Date: 20201119
  Receipt Date: 20210205
  Transmission Date: 20210419
  Serious: Yes (Life-Threatening, Hospitalization, Other)
  Sender: FDA-Public Use
  Company Number: MA-CIPLA LTD.-2020MA08590

PATIENT

DRUGS (6)
  1. SALBUTAMOL [Suspect]
     Active Substance: ALBUTEROL
     Dosage: 5 MG EVERY 20 MIN IN 7 DOSES, TOTAL 35 MG
  2. METHYLPREDNISOLONE. [Concomitant]
     Active Substance: METHYLPREDNISOLONE
     Indication: PROPHYLAXIS AGAINST GASTROINTESTINAL ULCER
     Dosage: REDUCED TO 60 MG, DAILY
     Route: 042
  3. SALBUTAMOL [Suspect]
     Active Substance: ALBUTEROL
     Indication: ASTHMA
     Dosage: UNK, INCREASED DOSES OF INHALED SALBUTAMOL AT HOME
  4. IPRATROPIUM [Concomitant]
     Active Substance: IPRATROPIUM
     Indication: ASTHMA
     Dosage: 250 MILLIGRAM
  5. OXYGEN. [Concomitant]
     Active Substance: OXYGEN
     Indication: ASTHMA
     Dosage: UNK
     Route: 065
  6. METHYLPREDNISOLONE. [Concomitant]
     Active Substance: METHYLPREDNISOLONE
     Indication: DEEP VEIN THROMBOSIS
     Dosage: 120 MG, UNK
     Route: 042

REACTIONS (3)
  - Lactic acidosis [Recovered/Resolved]
  - Respiratory failure [Recovered/Resolved]
  - Incorrect dose administered [Unknown]
